FAERS Safety Report 7516537-2 (Version None)
Quarter: 2011Q2

REPORT INFORMATION
  Report Type: 
  Country: None (occurrence: None)
  Receive Date: 20110601
  Receipt Date: 20110524
  Transmission Date: 20111010
  Serious: Yes (Hospitalization)
  Sender: FDA-Public Use
  Company Number: B0717083A

PATIENT
  Sex: Male
  Weight: 13 kg

DRUGS (1)
  1. PROPAFENONE HCL [Suspect]
     Dosage: 300MG SINGLE DOSE
     Route: 048

REACTIONS (1)
  - ACCIDENTAL EXPOSURE [None]
